FAERS Safety Report 7525364-1 (Version None)
Quarter: 2011Q2

REPORT INFORMATION
  Report Type: 
  Country: None (occurrence: None)
  Receive Date: 20110602
  Receipt Date: 20110602
  Transmission Date: 20111010
  Serious: No
  Sender: FDA-Public Use
  Company Number: None

PATIENT
  Sex: Female
  Weight: 59.4212 kg

DRUGS (1)
  1. LAMICTAL [Suspect]
     Dosage: 200MG BID

REACTIONS (3)
  - FATIGUE [None]
  - DEPRESSION [None]
  - ANXIETY [None]
